FAERS Safety Report 5027096-0 (Version None)
Quarter: 2006Q2

REPORT INFORMATION
  Report Type: 
  Country: None (occurrence: None)
  Receive Date: 20060612
  Receipt Date: 20060525
  Transmission Date: 20061013
  Serious: Yes (Hospitalization, Other)
  Sender: FDA-Public Use
  Company Number: US-2006-013333

PATIENT
  Age: 57 Year
  Sex: Male

DRUGS (1)
  1. BETASERON [Suspect]
     Indication: SECONDARY PROGRESSIVE MULTIPLE SCLEROSIS
     Dosage: 8 MIU, EVERY 2D, SUBCUTANEOUS
     Route: 058
     Dates: start: 20041206

REACTIONS (7)
  - BEDRIDDEN [None]
  - BLOOD COUNT ABNORMAL [None]
  - COORDINATION ABNORMAL [None]
  - DECUBITUS ULCER [None]
  - DEVICE RELATED INFECTION [None]
  - MUSCLE SPASTICITY [None]
  - STAPHYLOCOCCAL INFECTION [None]
